FAERS Safety Report 7392306-1 (Version None)
Quarter: 2011Q2

REPORT INFORMATION
  Report Type: 
  Country: None (occurrence: None)
  Receive Date: 20110404
  Receipt Date: 20110329
  Transmission Date: 20111010
  Serious: Yes (Other)
  Sender: FDA-Public Use
  Company Number: US-PFIZER INC-2011070412

PATIENT
  Sex: Male

DRUGS (1)
  1. ROBITUSSIN CHEST CONGESTION [Suspect]
     Indication: PULMONARY CONGESTION
     Dosage: UNK

REACTIONS (1)
  - PROSTATOMEGALY [None]
